FAERS Safety Report 7956883-1 (Version None)
Quarter: 2011Q4

REPORT INFORMATION
  Report Type: 
  Country: None (occurrence: None)
  Receive Date: 20111205
  Receipt Date: 20111027
  Transmission Date: 20120403
  Serious: No
  Sender: FDA-Public Use
  Company Number: US-BAYER-2011-106045

PATIENT
  Age: 68 Year
  Sex: Female
  Weight: 91 kg

DRUGS (7)
  1. ALEVE (CAPLET) [Suspect]
     Indication: BACK PAIN
     Dosage: 1 DF, ONCE
     Route: 048
     Dates: start: 20111027, end: 20111027
  2. ATENOLOL [Concomitant]
  3. EYEDROPS FOR GLAUCOMA [Concomitant]
  4. LISINOPRIL [Concomitant]
  5. INSULIN [INSULIN] [Concomitant]
  6. SIMVASTATIN [Concomitant]
  7. ACTOS [Concomitant]

REACTIONS (2)
  - DIARRHOEA [None]
  - ABDOMINAL PAIN [None]
